FAERS Safety Report 21376354 (Version 1)
Quarter: 2022Q3

REPORT INFORMATION
  Report Type: Spontaneous
  Country: JP (occurrence: JP)
  Receive Date: 20220926
  Receipt Date: 20220926
  Transmission Date: 20221027
  Serious: Yes (Hospitalization)
  Sender: FDA-Public Use
  Company Number: JP-Eisai-202208248_DVG_P_1

PATIENT
  Sex: Male

DRUGS (2)
  1. DAYVIGO [Suspect]
     Active Substance: LEMBOREXANT
     Indication: Product used for unknown indication
     Route: 048
  2. TRIAZOLAM [Concomitant]
     Active Substance: TRIAZOLAM
     Indication: Product used for unknown indication
     Dosage: DOSE AND FREQUENCY NOT REPORTED
     Route: 065

REACTIONS (3)
  - Fall [Unknown]
  - Dizziness [Unknown]
  - Somnolence [Unknown]
